FAERS Safety Report 14503816 (Version 1)
Quarter: 2018Q1

REPORT INFORMATION
  Report Type: Spontaneous
  Country: US (occurrence: US)
  Receive Date: 20180208
  Receipt Date: 20180208
  Transmission Date: 20180509
  Serious: No
  Sender: FDA-Public Use
  Company Number: US-JNJFOC-20180117320

PATIENT
  Sex: Male

DRUGS (14)
  1. VALSARTAN. [Concomitant]
     Active Substance: VALSARTAN
  2. FISH OIL [Concomitant]
     Active Substance: FISH OIL
  3. DUTASTERIDE. [Concomitant]
     Active Substance: DUTASTERIDE
  4. ATIVAN [Concomitant]
     Active Substance: LORAZEPAM
  5. MIRALAX [Concomitant]
     Active Substance: POLYETHYLENE GLYCOL 3350
  6. SELENIUM [Concomitant]
     Active Substance: SELENIUM
  7. RAPAFLO [Concomitant]
     Active Substance: SILODOSIN
  8. SENNA [Concomitant]
     Active Substance: SENNA LEAF\SENNOSIDES\SENNOSIDES A AND B
  9. ZINC. [Concomitant]
     Active Substance: ZINC
  10. VITAMIN D3 [Concomitant]
     Active Substance: CHOLECALCIFEROL
  11. MAGNESIUM [Concomitant]
     Active Substance: MAGNESIUM
  12. GABAPENTIN. [Concomitant]
     Active Substance: GABAPENTIN
  13. IMBRUVICA [Suspect]
     Active Substance: IBRUTINIB
     Indication: MANTLE CELL LYMPHOMA
     Route: 065
     Dates: start: 20170420
  14. COQ10 [Concomitant]
     Active Substance: UBIDECARENONE

REACTIONS (1)
  - Weight increased [Unknown]
